FAERS Safety Report 4816182-3 (Version None)
Quarter: 2005Q4

REPORT INFORMATION
  Report Type: 
  Country: None (occurrence: None)
  Receive Date: 20051025
  Receipt Date: 20051005
  Transmission Date: 20060501
  Serious: Yes (Hospitalization)
  Sender: FDA-Public Use
  Company Number: 200511708BBE

PATIENT
  Age: 80 Year
  Sex: Female
  Weight: 61.2 kg

DRUGS (3)
  1. GAMUNEX [Suspect]
     Indication: NEUROPATHY PERIPHERAL
     Dosage: 20 G, NI, INTRAVENOUS
     Route: 042
     Dates: start: 20050906
  2. GAMUNEX [Suspect]
     Indication: NEUROPATHY PERIPHERAL
     Dosage: 5 G, INTRAVENOUS
     Route: 042
     Dates: start: 20050906
  3. NITROGLYCERIN [Concomitant]

REACTIONS (2)
  - ATRIAL FIBRILLATION [None]
  - CHEST PAIN [None]
